FAERS Safety Report 4338129-9 (Version None)
Quarter: 2004Q1

REPORT INFORMATION
  Report Type: 
  Country: None (occurrence: None)
  Receive Date: 20040329
  Receipt Date: 20040218
  Transmission Date: 20041129
  Serious: No
  Sender: FDA-Public Use
  Company Number: USA040259648

PATIENT
  Age: 8 Year
  Sex: Male
  Weight: 25 kg

DRUGS (4)
  1. STRATTERA [Suspect]
     Indication: ATTENTION DEFICIT/HYPERACTIVITY DISORDER
     Dosage: 40 MG/DAY
     Dates: start: 20040213
  2. CLARITIN [Concomitant]
  3. FLOVENT [Concomitant]
  4. NASONEX [Concomitant]

REACTIONS (6)
  - DECREASED APPETITE [None]
  - DYSPEPSIA [None]
  - NAUSEA [None]
  - PRESCRIBED OVERDOSE [None]
  - SOMNOLENCE [None]
  - VOMITING [None]
